FAERS Safety Report 14798681 (Version 1)
Quarter: 2018Q2

REPORT INFORMATION
  Report Type: Report from Study
  Country: DE (occurrence: DE)
  Receive Date: 20180424
  Receipt Date: 20180424
  Transmission Date: 20180711
  Serious: Yes (Other)
  Sender: FDA-Public Use
  Company Number: DE-ROCHE-2113224

PATIENT
  Age: 63 Year
  Sex: Female
  Weight: 76 kg

DRUGS (3)
  1. BEVACIZUMAB. [Suspect]
     Active Substance: BEVACIZUMAB
     Indication: BREAST CANCER
     Route: 065
     Dates: start: 20091109, end: 20100125
  2. BEVACIZUMAB. [Suspect]
     Active Substance: BEVACIZUMAB
     Route: 065
     Dates: start: 20100125, end: 20100125
  3. TAXOL [Concomitant]
     Active Substance: PACLITAXEL
     Indication: BREAST CANCER
     Dosage: SUBSEQUENT DOSES RECEIVED ON 16/NOV/2009, 23/NOV/2009, 07/DEC/2009, 14/DEC/2009, 21/DEC/2009, 11/JAN
     Route: 065
     Dates: start: 20091109

REACTIONS (2)
  - Retinal haemorrhage [Recovered/Resolved]
  - Polyneuropathy [Unknown]

NARRATIVE: CASE EVENT DATE: 20100204
